FAERS Safety Report 6073014-6 (Version None)
Quarter: 2009Q1

REPORT INFORMATION
  Report Type: 
  Country: None (occurrence: None)
  Receive Date: 20090209
  Receipt Date: 20090209
  Transmission Date: 20090719
  Serious: Yes (Life-Threatening, Hospitalization, Other)
  Sender: FDA-Public Use
  Company Number: None

PATIENT
  Age: 43 Year
  Sex: Female
  Weight: 71.2147 kg

DRUGS (2)
  1. VIOXX [Suspect]
     Indication: BACK PAIN
     Dosage: 25MG. 1 OR 2 A DAY AS NEEDED 4 TO 5 DAYS A WEEK  INTRACORONARY
     Route: 022
     Dates: start: 19991201, end: 20040401
  2. VIOXX [Suspect]
     Indication: FIBROMYALGIA
     Dosage: 25MG. 1 OR 2 A DAY AS NEEDED 4 TO 5 DAYS A WEEK  INTRACORONARY
     Route: 022
     Dates: start: 19991201, end: 20040401

REACTIONS (20)
  - ASTHENIA [None]
  - BACK PAIN [None]
  - CHEST PAIN [None]
  - CRYING [None]
  - DYSPNOEA [None]
  - FATIGUE [None]
  - HEADACHE [None]
  - MEMORY IMPAIRMENT [None]
  - MOVEMENT DISORDER [None]
  - NAUSEA [None]
  - NEOPLASM [None]
  - NERVOUS SYSTEM DISORDER [None]
  - OCULAR HYPERAEMIA [None]
  - PAIN [None]
  - PAIN IN EXTREMITY [None]
  - PAIN IN JAW [None]
  - PALPITATIONS [None]
  - POOR QUALITY SLEEP [None]
  - RASH [None]
  - VISION BLURRED [None]
